FAERS Safety Report 8744000 (Version 4)
Quarter: 2017Q1

REPORT INFORMATION
  Report Type: Spontaneous
  Country: FR (occurrence: FR)
  Receive Date: 20120824
  Receipt Date: 20170310
  Transmission Date: 20170429
  Serious: Yes (Death, Life-Threatening, Hospitalization)
  Sender: FDA-Public Use
  Company Number: FR-ASTRAZENECA-2012SE60446

PATIENT
  Age: 12633 Day
  Sex: Male

DRUGS (10)
  1. MORPHINE [Concomitant]
     Active Substance: MORPHINE
  2. PARACETAMOL [Concomitant]
     Active Substance: ACETAMINOPHEN
     Dosage: 1.0G ONCE/SINGLE ADMINISTRATION
  3. XEROQUEL [Suspect]
     Active Substance: QUETIAPINE FUMARATE
     Indication: PSYCHOTIC DISORDER
     Route: 048
     Dates: start: 20120605, end: 20120625
  4. VALIUM [Suspect]
     Active Substance: DIAZEPAM
     Route: 048
     Dates: start: 201206, end: 20120625
  5. LOXAPAC [Suspect]
     Active Substance: LOXAPINE SUCCINATE
     Indication: AGGRESSION
     Route: 048
     Dates: start: 20120614, end: 20120625
  6. LOXAPAC [Suspect]
     Active Substance: LOXAPINE SUCCINATE
     Indication: AGGRESSION
     Dosage: 100 MG AS NEEDED
     Route: 048
     Dates: start: 20120614, end: 20120625
  7. TRAMADOL. [Concomitant]
     Active Substance: TRAMADOL
     Dosage: 100.0MG ONCE/SINGLE ADMINISTRATION
  8. PHLOROGLUCINOL [Concomitant]
     Active Substance: PHLOROGLUCINOL
     Dosage: 80.0MG ONCE/SINGLE ADMINISTRATION
  9. LEPTICUR [Suspect]
     Active Substance: TROPATEPINE HYDROCHLORIDE
     Route: 048
     Dates: start: 20120605, end: 20120625
  10. DEPAKINE [Suspect]
     Active Substance: VALPROATE SODIUM
     Route: 048
     Dates: start: 201206, end: 20120625

REACTIONS (12)
  - Multiple organ dysfunction syndrome [Unknown]
  - Cardiac arrest [Fatal]
  - Septic shock [Unknown]
  - Shock haemorrhagic [Unknown]
  - Gastrointestinal stoma complication [Unknown]
  - Intestinal ischaemia [Fatal]
  - Staphylococcal infection [Unknown]
  - Candida infection [Unknown]
  - Large intestine perforation [Unknown]
  - Intestinal obstruction [Fatal]
  - Gastrointestinal necrosis [Fatal]
  - Pseudomonas infection [Fatal]

NARRATIVE: CASE EVENT DATE: 20120623
